FAERS Safety Report 19202566 (Version 2)
Quarter: 2021Q2

REPORT INFORMATION
  Report Type: Spontaneous
  Country: FR (occurrence: FR)
  Receive Date: 20210502
  Receipt Date: 20210521
  Transmission Date: 20210717
  Serious: Yes (Hospitalization)
  Sender: FDA-Public Use
  Company Number: FR-JNJFOC-20210454632

PATIENT
  Age: 73 Year
  Sex: Female
  Weight: 86 kg

DRUGS (9)
  1. STELARA [Suspect]
     Active Substance: USTEKINUMAB
     Indication: PRODUCT USED FOR UNKNOWN INDICATION
     Dosage: ; IN TOTAL
     Route: 042
     Dates: start: 20210408, end: 20210408
  2. CEFTRIAXONE MYL [Suspect]
     Active Substance: CEFTRIAXONE
     Indication: PRODUCT USED FOR UNKNOWN INDICATION
     Dosage: 1 FLACON/JOUR
     Route: 042
     Dates: start: 20210323, end: 20210414
  3. CLOMIPRAMINE [Concomitant]
     Active Substance: CLOMIPRAMINE
  4. LERCANIDIPINE [Concomitant]
     Active Substance: LERCANIDIPINE
  5. TELMISARTAN/HYDROCHLOROTHIAZIDE TEVA PHARMA [Concomitant]
  6. TERCIAN [CYAMEMAZINE] [Concomitant]
     Active Substance: CYAMEMAZINE
  7. LORAZEPAM. [Concomitant]
     Active Substance: LORAZEPAM
  8. JANUMET [Concomitant]
     Active Substance: METFORMIN HYDROCHLORIDE\SITAGLIPTIN PHOSPHATE
  9. SERESTA [Concomitant]
     Active Substance: OXAZEPAM

REACTIONS (3)
  - Stereotypy [Recovered/Resolved]
  - Loss of consciousness [Recovered/Resolved]
  - Neurologic neglect syndrome [Recovered/Resolved]

NARRATIVE: CASE EVENT DATE: 20210408
